FAERS Safety Report 9874092 (Version 2)
Quarter: 2014Q1

REPORT INFORMATION
  Report Type: Spontaneous
  Country: US (occurrence: US)
  Receive Date: 20140206
  Receipt Date: 20140206
  Transmission Date: 20141002
  Serious: No
  Sender: FDA-Public Use
  Company Number: US-ACORDA-ACO_34459_2013

PATIENT
  Age: 51 Year
  Sex: Female
  Weight: 56.69 kg

DRUGS (7)
  1. AMPYRA [Suspect]
     Indication: GAIT DISTURBANCE
     Dosage: 10 MG, Q 12 HRS
     Route: 048
     Dates: start: 20130207, end: 20130210
  2. KLONOPIN [Concomitant]
     Indication: INSOMNIA
     Dosage: 1.0 MG, QD AT NIGHT
     Dates: start: 2008, end: 2013
  3. GABAPENTIN [Concomitant]
     Indication: MUSCLE SPASTICITY
     Dosage: 900 MG, QD AT NIGHT
     Dates: start: 2008, end: 2013
  4. GABAPENTIN [Concomitant]
     Indication: INSOMNIA
  5. BUPROPION [Concomitant]
     Indication: DEPRESSION
     Dosage: 75 MG, QD
     Dates: start: 2008, end: 2013
  6. VITAMINS [Concomitant]
     Indication: PRODUCT USED FOR UNKNOWN INDICATION
     Dosage: UNK
  7. LEVOTHYROXINE [Concomitant]
     Indication: HYPOTHYROIDISM
     Dosage: 25 ?G, QD
     Route: 048
     Dates: start: 201210, end: 201304

REACTIONS (5)
  - Dizziness [Recovered/Resolved]
  - Asthenia [Recovered/Resolved]
  - Balance disorder [Recovered/Resolved with Sequelae]
  - Nausea [Recovered/Resolved]
  - Back pain [Recovered/Resolved]
